FAERS Safety Report 21390518 (Version 8)
Quarter: 2023Q2

REPORT INFORMATION
  Report Type: Spontaneous
  Country: US (occurrence: US)
  Receive Date: 20220929
  Receipt Date: 20230628
  Transmission Date: 20230722
  Serious: No
  Sender: FDA-Public Use
  Company Number: US-GLAXOSMITHKLINE-US2022136332

PATIENT
  Age: 51 Year
  Sex: Female

DRUGS (10)
  1. ZEJULA [Suspect]
     Active Substance: NIRAPARIB
     Indication: Ovarian cancer
     Dosage: 200 MG
     Dates: start: 20220902
  2. ZEJULA [Suspect]
     Active Substance: NIRAPARIB
     Dosage: 200 MG, QD
  3. ZEJULA [Suspect]
     Active Substance: NIRAPARIB
     Dosage: 200 MG, QD, (6PM WITH DINNER)
  4. ZEJULA [Suspect]
     Active Substance: NIRAPARIB
     Dosage: 200 MG, QD
     Route: 048
  5. ZEJULA [Suspect]
     Active Substance: NIRAPARIB
     Dosage: 100 MG
     Dates: start: 20230112
  6. ZEJULA [Suspect]
     Active Substance: NIRAPARIB
     Dosage: 100 MG, QD
     Route: 048
  7. ZEJULA [Suspect]
     Active Substance: NIRAPARIB
     Dosage: 100 MG, QD
     Route: 048
  8. ZEJULA [Suspect]
     Active Substance: NIRAPARIB
     Dosage: 100 MG, QD
     Route: 048
     Dates: start: 20230622
  9. MELATONIN [Concomitant]
     Active Substance: MELATONIN
     Indication: Poor quality sleep
     Dosage: UNK
  10. B 6 VITAMIN [Concomitant]
     Indication: Product used for unknown indication
     Dosage: UNK

REACTIONS (11)
  - Fatigue [Not Recovered/Not Resolved]
  - Dyspepsia [Unknown]
  - Insomnia [Not Recovered/Not Resolved]
  - Blood potassium decreased [Unknown]
  - White blood cell count decreased [Not Recovered/Not Resolved]
  - Back pain [Unknown]
  - Asthenia [Unknown]
  - Haematuria [Unknown]
  - Palpitations [Unknown]
  - Heart rate increased [Unknown]
  - Product dose omission issue [Unknown]

NARRATIVE: CASE EVENT DATE: 20220901
